FAERS Safety Report 17256554 (Version 2)
Quarter: 2020Q1

REPORT INFORMATION
  Report Type: Spontaneous
  Country: DE (occurrence: DE)
  Receive Date: 20200110
  Receipt Date: 20200326
  Transmission Date: 20200409
  Serious: Yes (Death, Other)
  Sender: FDA-Public Use
  Company Number: DE-TEVA-2020-DE-1165428

PATIENT
  Age: 64 Year
  Sex: Male

DRUGS (2)
  1. DOCETAXEL. [Suspect]
     Active Substance: DOCETAXEL
     Indication: PRODUCT USED FOR UNKNOWN INDICATION
     Route: 065
     Dates: start: 20180327, end: 20180605
  2. VARGATEF [Suspect]
     Active Substance: NINTEDANIB
     Indication: NON-SMALL CELL LUNG CANCER
     Dosage: 400 MG
     Route: 048
     Dates: start: 20180327, end: 20180605

REACTIONS (4)
  - Death [Fatal]
  - Diarrhoea [Recovering/Resolving]
  - Malignant neoplasm progression [Unknown]
  - Acute kidney injury [Recovering/Resolving]

NARRATIVE: CASE EVENT DATE: 20181023
